FAERS Safety Report 19477447 (Version 1)
Quarter: 2021Q2

REPORT INFORMATION
  Report Type: Spontaneous
  Country: GB (occurrence: GB)
  Receive Date: 20210630
  Receipt Date: 20210630
  Transmission Date: 20210717
  Serious: Yes (Other)
  Sender: FDA-Public Use
  Company Number: GB-BAYER-2021-164201

PATIENT
  Age: 18 Year
  Sex: Male
  Weight: 66 kg

DRUGS (2)
  1. ASTRAZENECA COVID?19 VACCINE [Suspect]
     Active Substance: AZD-1222
     Dates: start: 20210521
  2. GADOVIST [Suspect]
     Active Substance: GADOBUTROL
     Dosage: UNK

REACTIONS (9)
  - Myocardial infarction [Recovered/Resolved]
  - Chest pain [Recovered/Resolved]
  - Hyperhidrosis [Recovered/Resolved]
  - Nausea [Recovered/Resolved]
  - Dyspnoea exertional [Recovered/Resolved]
  - Myocarditis [Recovered/Resolved]
  - Conjunctival hyperaemia [Recovered/Resolved]
  - Myocarditis [Recovering/Resolving]
  - Pericardial effusion [Recovered/Resolved]

NARRATIVE: CASE EVENT DATE: 20210616
